FAERS Safety Report 10027670 (Version 1)
Quarter: 2014Q1

REPORT INFORMATION
  Report Type: Spontaneous
  Country: US (occurrence: US)
  Receive Date: 20140321
  Receipt Date: 20140321
  Transmission Date: 20141002
  Serious: Yes (Hospitalization)
  Sender: FDA-Public Use
  Company Number: US-BAYER-2014-041668

PATIENT
  Age: 36 Year
  Sex: Female
  Weight: 94.79 kg

DRUGS (4)
  1. YASMIN [Suspect]
  2. ZITHROMAX [Concomitant]
     Dosage: 500 MG, UNK
     Route: 048
     Dates: start: 20050326
  3. NAPROSYN [Concomitant]
     Dosage: 500 MG, PRN
     Route: 048
     Dates: start: 20050326
  4. ROCEPHIN [Concomitant]

REACTIONS (1)
  - Pulmonary embolism [None]
